FAERS Safety Report 20050073 (Version 1)
Quarter: 2021Q4

REPORT INFORMATION
  Report Type: Spontaneous
  Country: US (occurrence: None)
  Receive Date: 20211109
  Receipt Date: 20211109
  Transmission Date: 20220303
  Serious: No
  Sender: FDA-Public Use
  Company Number: None

PATIENT
  Age: 31 Year
  Sex: Female

DRUGS (5)
  1. DIMETHYL FUMARATE [Suspect]
     Active Substance: DIMETHYL FUMARATE
     Indication: Paraesthesia
     Dosage: FREQUENCY : TWICE A DAY;?
     Route: 048
     Dates: start: 20210515
  2. AMANTADINE [Concomitant]
     Active Substance: AMANTADINE
  3. VITAMINS [Concomitant]
     Active Substance: VITAMINS
  4. CYCLOBENZAPRINE [Concomitant]
     Active Substance: CYCLOBENZAPRINE
  5. METHYLPREDNISOLONE [Concomitant]
     Active Substance: METHYLPREDNISOLONE

REACTIONS (3)
  - Hypoaesthesia [None]
  - Fatigue [None]
  - Neck pain [None]

NARRATIVE: CASE EVENT DATE: 20211102
